FAERS Safety Report 5765048-3 (Version None)
Quarter: 2008Q2

REPORT INFORMATION
  Report Type: 
  Country: None (occurrence: None)
  Receive Date: 20080611
  Receipt Date: 20080529
  Transmission Date: 20081010
  Serious: Yes (Death, Life-Threatening, Hospitalization, Other)
  Sender: FDA-Public Use
  Company Number: FR-BRISTOL-MYERS SQUIBB COMPANY-14218564

PATIENT
  Age: 65 Year
  Sex: Male

DRUGS (9)
  1. CYCLOPHOSPHAMIDE [Suspect]
     Indication: BURKITT'S LYMPHOMA
     Dosage: FIRST CYCLE - 02JUL05 ,08JUL05 SECOND COURSE FROM 28 TO 30JUL05.
     Route: 042
     Dates: start: 20050702, end: 20050730
  2. ONCOVIN [Suspect]
     Indication: BURKITT'S LYMPHOMA
     Dosage: CYC2-2MG ON 27JUL05 AND 01AUG05. CYC1 ON 02JUL05.
     Route: 042
     Dates: start: 20050702, end: 20050801
  3. METHOTREXATE [Suspect]
     Indication: BURKITT'S LYMPHOMA
     Dosage: CYC-2 4500 MG IV DAILY 27JUL05-01AUG05. CYC-1 15MG ROUTE-INTRATHECAL DAILY ON 29JUL05 AND 01AUG05.
     Route: 042
     Dates: start: 20050727, end: 20050801
  4. ADRIAMYCIN PFS [Suspect]
     Indication: BURKITT'S LYMPHOMA
     Route: 042
     Dates: start: 20050728, end: 20050728
  5. PREDNISOLONE [Suspect]
     Indication: BURKITT'S LYMPHOMA
     Dosage: CYC1 ON 02JUL05. CYC 2 ON 27JUL05 TO 01AUG05.
     Route: 048
     Dates: start: 20050702, end: 20050801
  6. MABTHERA [Suspect]
     Indication: BURKITT'S LYMPHOMA
     Route: 042
     Dates: start: 20050726, end: 20050726
  7. TIENAM [Concomitant]
     Dates: start: 20050701
  8. AMIKACIN [Concomitant]
     Dates: start: 20050701
  9. CEFALOTIN [Concomitant]
     Dates: start: 20050701

REACTIONS (8)
  - BONE MARROW FAILURE [None]
  - CARDIOGENIC SHOCK [None]
  - DIARRHOEA [None]
  - MUCOSAL INFLAMMATION [None]
  - MULTI-ORGAN FAILURE [None]
  - PANCYTOPENIA [None]
  - RESPIRATORY DISTRESS [None]
  - SEPTIC SHOCK [None]
